FAERS Safety Report 6897132-5 (Version None)
Quarter: 2010Q3

REPORT INFORMATION
  Report Type: 
  Country: None (occurrence: None)
  Receive Date: 20100729
  Receipt Date: 20100720
  Transmission Date: 20110219
  Serious: Yes (Life-Threatening, Hospitalization)
  Sender: FDA-Public Use
  Company Number: 2010SP039767

PATIENT
  Age: 69 Year
  Sex: Male

DRUGS (14)
  1. REMERON [Suspect]
     Indication: DEPRESSION
     Dosage: 60 MG; QD; PO
     Route: 048
     Dates: end: 20100328
  2. EFFEXOR [Suspect]
     Indication: DEPRESSION
     Dosage: 75 MG; QD; PO
     Route: 048
     Dates: end: 20100330
  3. TEMGESIC [Concomitant]
  4. PANTOZOL [Concomitant]
  5. ZYLORIC [Concomitant]
  6. NORVASC [Concomitant]
  7. PROGRAF [Concomitant]
  8. CELLCEPT [Concomitant]
  9. PREDNISONE TAB [Concomitant]
  10. ACETAMINOPHEN [Concomitant]
  11. NOPIL FORTE [Concomitant]
  12. AMPHOTERICIN B [Concomitant]
  13. SEROQUEL [Concomitant]
  14. HALDOL [Concomitant]

REACTIONS (3)
  - DRUG INTERACTION [None]
  - HYPOKINESIA [None]
  - SEROTONIN SYNDROME [None]
